FAERS Safety Report 10893549 (Version 3)
Quarter: 2015Q1

REPORT INFORMATION
  Report Type: Spontaneous
  Country: CN (occurrence: CN)
  Receive Date: 20150306
  Receipt Date: 20150323
  Transmission Date: 20150721
  Serious: Yes (Other)
  Sender: FDA-Public Use
  Company Number: CN-ABBVIE-15P-035-1356553-00

PATIENT
  Age: 8 Year
  Sex: Female

DRUGS (1)
  1. DEPAKIN [Suspect]
     Active Substance: VALPROATE SODIUM
     Indication: EPILEPSY
     Route: 048

REACTIONS (8)
  - Muscle spasms [Recovered/Resolved]
  - Product counterfeit [Unknown]
  - Headache [Recovered/Resolved]
  - Epilepsy [Recovered/Resolved]
  - Foaming at mouth [Recovered/Resolved]
  - Somnolence [Recovered/Resolved]
  - Pain [Recovered/Resolved]
  - Loss of consciousness [Recovered/Resolved]

NARRATIVE: CASE EVENT DATE: 20150219
